FAERS Safety Report 8431825-3 (Version None)
Quarter: 2012Q2

REPORT INFORMATION
  Report Type: 
  Country: None (occurrence: None)
  Receive Date: 20120607
  Receipt Date: 20120607
  Transmission Date: 20120825
  Serious: No
  Sender: FDA-Public Use
  Company Number: None

PATIENT
  Sex: Male
  Weight: 49.5 kg

DRUGS (12)
  1. METHOTREXATE [Suspect]
     Dosage: 100 MG
  2. ACETAMINOPHEN [Concomitant]
  3. DEXAMETHASONE SODIUM POSPHATE [Concomitant]
  4. CYCLOPHOSPHAMIDE [Suspect]
     Dosage: 2990 MG
  5. MERCAPTOPURINE [Suspect]
     Dosage: 2400 MG
  6. FLUCONAZOLE [Concomitant]
  7. CYTARABINE [Suspect]
     Dosage: 888 MG
  8. FUROSEMIDE [Concomitant]
  9. OMEPRAZOLE [Concomitant]
  10. PEG-L-ASPARAGINASE (K-H) [Suspect]
     Dosage: 7475 IU
  11. ACYCLOVIR [Concomitant]
  12. SULFADIAZINE [Concomitant]

REACTIONS (4)
  - BLOOD TRIGLYCERIDES INCREASED [None]
  - HIGH DENSITY LIPOPROTEIN DECREASED [None]
  - LOW DENSITY LIPOPROTEIN INCREASED [None]
  - BLOOD CHOLESTEROL INCREASED [None]
